FAERS Safety Report 5463798-X (Version None)
Quarter: 2007Q3

REPORT INFORMATION
  Report Type: 
  Country: None (occurrence: None)
  Receive Date: 20070919
  Receipt Date: 20070912
  Transmission Date: 20080115
  Serious: Yes (Hospitalization)
  Sender: FDA-Public Use
  Company Number: TPA2007A01877

PATIENT
  Age: 53 Year
  Sex: Female

DRUGS (10)
  1. PIOGLITAZONE [Suspect]
     Indication: TYPE 2 DIABETES MELLITUS
     Dosage: PER ORAL
     Route: 048
  2. METFORMIN HCL [Concomitant]
  3. GLYBURIDE [Concomitant]
  4. BUTALBITAL/CAFFEINE/PARACETAMOL (CAFFEINE, BUTALBITAL, PARACETAMOL) [Concomitant]
  5. LISINOPRIL [Concomitant]
  6. TEMAZEPAM [Concomitant]
  7. DIPHENHYDRAMINE HYDROCHLORIDE/PARACETAMOL/PESUDOEPHEDRINE HYDROCHLORID [Concomitant]
  8. IBUPROFEN [Concomitant]
  9. VENLAFAXINE HCL [Concomitant]
  10. VITAMINS NOS (VITAMINS NOS) [Concomitant]

REACTIONS (3)
  - ANKLE FRACTURE [None]
  - FALL [None]
  - JOINT DISLOCATION [None]
